FAERS Safety Report 16095328 (Version 2)
Quarter: 2019Q2

REPORT INFORMATION
  Report Type: Report from Study
  Country: US (occurrence: US)
  Receive Date: 20190320
  Receipt Date: 20190412
  Transmission Date: 20190711
  Serious: Yes (Hospitalization)
  Sender: FDA-Public Use
  Company Number: US-B.I. PHARMACEUTICALS,INC./RIDGEFIELD-2019-BI-002776

PATIENT
  Age: 58 Year
  Sex: Female

DRUGS (1)
  1. OFEV [Suspect]
     Active Substance: NINTEDANIB
     Indication: IDIOPATHIC PULMONARY FIBROSIS
     Route: 048
     Dates: start: 20181128, end: 20190128

REACTIONS (6)
  - Cerebral haemorrhage [Recovered/Resolved]
  - Cerebrovascular accident [Unknown]
  - Cough [Unknown]
  - Dyspnoea [Unknown]
  - Cerebral haemorrhage [Unknown]
  - Productive cough [Unknown]

NARRATIVE: CASE EVENT DATE: 20190228
